FAERS Safety Report 6304595-2 (Version None)
Quarter: 2009Q3

REPORT INFORMATION
  Report Type: 
  Country: None (occurrence: None)
  Receive Date: 20090811
  Receipt Date: 20090803
  Transmission Date: 20100115
  Serious: Yes (Other)
  Sender: FDA-Public Use
  Company Number: JP-JNJFOC-20090801418

PATIENT
  Sex: Male
  Weight: 25.4 kg

DRUGS (30)
  1. ITRIZOLE [Suspect]
     Route: 042
  2. ITRIZOLE [Suspect]
     Route: 042
  3. ITRIZOLE [Suspect]
     Indication: DRUG USE FOR UNKNOWN INDICATION
     Route: 042
  4. SANDIMMUNE [Suspect]
     Route: 048
  5. SANDIMMUNE [Suspect]
     Route: 048
  6. SANDIMMUNE [Suspect]
     Route: 048
  7. SANDIMMUNE [Suspect]
     Indication: DRUG USE FOR UNKNOWN INDICATION
     Route: 048
  8. DIFLUCAN [Concomitant]
     Indication: PROPHYLAXIS
     Route: 048
  9. CRAVIT [Concomitant]
  10. CRAVIT [Concomitant]
     Indication: PROPHYLAXIS
  11. BAKTAR [Concomitant]
     Indication: PROPHYLAXIS
     Route: 048
  12. PREDONINE [Concomitant]
     Route: 048
  13. PREDONINE [Concomitant]
     Route: 048
  14. SOLU-MEDROL [Concomitant]
     Route: 042
  15. SOLU-MEDROL [Concomitant]
     Route: 042
  16. SOLU-MEDROL [Concomitant]
     Route: 042
  17. SOLU-MEDROL [Concomitant]
     Route: 042
  18. SOLU-MEDROL [Concomitant]
     Route: 042
  19. SOLU-MEDROL [Concomitant]
     Route: 042
  20. SOLU-MEDROL [Concomitant]
     Route: 042
  21. TAZOCIN [Concomitant]
     Route: 042
  22. PROGRAF [Concomitant]
     Route: 042
  23. PROGRAF [Concomitant]
     Route: 042
  24. PROGRAF [Concomitant]
     Route: 042
  25. PROGRAF [Concomitant]
     Route: 042
  26. PROGRAF [Concomitant]
     Route: 042
  27. PROGRAF [Concomitant]
     Route: 042
  28. ALBUMIN (HUMAN) [Concomitant]
     Route: 042
  29. ENBREL [Concomitant]
     Route: 058
  30. GANCICLOVIR [Concomitant]
     Indication: ASPARTATE AMINOTRANSFERASE INCREASED
     Route: 042

REACTIONS (6)
  - ALANINE AMINOTRANSFERASE INCREASED [None]
  - ASPARTATE AMINOTRANSFERASE INCREASED [None]
  - BLOOD ALKALINE PHOSPHATASE INCREASED [None]
  - BLOOD UREA INCREASED [None]
  - CYTOMEGALOVIRUS ANTIGEN POSITIVE [None]
  - HYPOXIA [None]
